FAERS Safety Report 15991331 (Version 1)
Quarter: 2019Q1

REPORT INFORMATION
  Report Type: Spontaneous
  Country: AU (occurrence: AU)
  Receive Date: 20190221
  Receipt Date: 20190221
  Transmission Date: 20190418
  Serious: Yes (Death, Life-Threatening)
  Sender: FDA-Public Use
  Company Number: AU-CLINIGEN GROUP PLC/ CLINIGEN HEALTHCARE LTD-AU-CLGN-19-00113

PATIENT
  Age: 14 Year
  Sex: Male
  Weight: 57.3 kg

DRUGS (17)
  1. BRINCIDOFOVIR [Suspect]
     Active Substance: BRINCIDOFOVIR
     Indication: ADENOVIRUS INFECTION
     Route: 048
     Dates: start: 20180518, end: 20180712
  2. GANCICLOVIR. [Suspect]
     Active Substance: GANCICLOVIR
     Indication: CYTOMEGALOVIRUS INFECTION
     Route: 042
  3. THIOTEPA. [Concomitant]
     Active Substance: THIOTEPA
     Indication: PRODUCT USED FOR UNKNOWN INDICATION
  4. CYCLOSPORINE. [Suspect]
     Active Substance: CYCLOSPORINE
     Indication: GRAFT VERSUS HOST DISEASE
     Route: 042
  5. FOSCARNET SODIUM. [Suspect]
     Active Substance: FOSCARNET SODIUM
     Indication: CYTOMEGALOVIRUS INFECTION
     Route: 042
  6. POSACONAZOLE [Suspect]
     Active Substance: POSACONAZOLE
     Indication: SCEDOSPORIUM INFECTION
  7. FLUDARABINE [Concomitant]
     Active Substance: FLUDARABINE PHOSPHATE
     Indication: PRODUCT USED FOR UNKNOWN INDICATION
  8. BRINCIDOFOVIR [Suspect]
     Active Substance: BRINCIDOFOVIR
     Route: 048
     Dates: start: 20180701, end: 20180809
  9. PREDNISOLONE. [Suspect]
     Active Substance: PREDNISOLONE
     Indication: ADRENAL INSUFFICIENCY
     Route: 048
  10. CIDOFOVIR. [Concomitant]
     Active Substance: CIDOFOVIR
     Indication: PRODUCT USED FOR UNKNOWN INDICATION
     Route: 042
  11. AMBISOME [Suspect]
     Active Substance: AMPHOTERICIN B
     Indication: SCEDOSPORIUM INFECTION
     Route: 042
  12. BACTRIM [Suspect]
     Active Substance: SULFAMETHOXAZOLE\TRIMETHOPRIM
     Indication: PROPHYLAXIS
     Route: 048
  13. CYCLOPHOSPHAMIDE. [Concomitant]
     Active Substance: CYCLOPHOSPHAMIDE
     Indication: PRODUCT USED FOR UNKNOWN INDICATION
  14. VORICONAZOLE. [Suspect]
     Active Substance: VORICONAZOLE
     Indication: SCEDOSPORIUM INFECTION
     Route: 048
  15. CIDOFOVIR. [Concomitant]
     Active Substance: CIDOFOVIR
  16. BUSULFAN. [Concomitant]
     Active Substance: BUSULFAN
     Indication: PRODUCT USED FOR UNKNOWN INDICATION
  17. TREOSULFAN [Concomitant]
     Active Substance: TREOSULFAN
     Indication: PRODUCT USED FOR UNKNOWN INDICATION

REACTIONS (4)
  - Hepatic failure [Not Recovered/Not Resolved]
  - Scedosporium infection [Fatal]
  - Pancytopenia [Unknown]
  - Off label use [Unknown]

NARRATIVE: CASE EVENT DATE: 20180306
